FAERS Safety Report 6939926-3 (Version None)
Quarter: 2010Q3

REPORT INFORMATION
  Report Type: 
  Country: None (occurrence: None)
  Receive Date: 20100825
  Receipt Date: 20100813
  Transmission Date: 20110219
  Serious: Yes (Death, Other)
  Sender: FDA-Public Use
  Company Number: GB-PFIZER INC-2010023650

PATIENT
  Age: 42 Year
  Sex: Female
  Weight: 64 kg

DRUGS (1)
  1. CHAMPIX [Suspect]
     Indication: SMOKING CESSATION THERAPY
     Dosage: UNK

REACTIONS (5)
  - ASPHYXIA [None]
  - BLOOD ALCOHOL INCREASED [None]
  - COMPLETED SUICIDE [None]
  - MOOD SWINGS [None]
  - PULMONARY CONGESTION [None]
